FAERS Safety Report 8061863-4 (Version None)
Quarter: 2012Q1

REPORT INFORMATION
  Report Type: 
  Country: None (occurrence: None)
  Receive Date: 20120117
  Receipt Date: 20120110
  Transmission Date: 20120608
  Serious: Yes (Other)
  Sender: FDA-Public Use
  Company Number: 1000026301

PATIENT
  Age: 76 Year
  Sex: Female
  Weight: 90.72 kg

DRUGS (10)
  1. DITROPAN (OXYBUTYNIN HYDROCHLORIDE) (OXYBUTYNIN HYDROCHLORIDE) [Concomitant]
  2. THEOPHYLLINE [Concomitant]
  3. DALIRESP [Suspect]
     Indication: ASTHMA
     Dosage: 500 MG (500 MG,1 IN 1 D),ORAL
     Route: 048
     Dates: start: 20110801
  4. DILANTIN [Concomitant]
  5. DOUBLE STRENGTH GLUCOSAMINE CHONDROITIN MSM WITH MOBILI-FLEX (GLUCOSAM [Suspect]
     Indication: SUPPLEMENTATION THERAPY
     Dosage: ONE CAPSULE THREE TIMES DAILY, ORAL
     Route: 048
     Dates: start: 20111024, end: 20111114
  6. PHENOBARBITAL TAB [Concomitant]
  7. LASIX [Concomitant]
  8. SYNTHRIOD (LEVOTHYROXINE SODIUM) (LEVOTHYROXINE SODIUM) [Concomitant]
  9. NEURONTIN [Concomitant]
  10. POTASSIUM (POTASSIUM) (POTASSIUM) [Concomitant]

REACTIONS (2)
  - CONVULSION [None]
  - OFF LABEL USE [None]
